FAERS Safety Report 9378669 (Version 4)
Quarter: 2013Q4

REPORT INFORMATION
  Report Type: Report from Study
  Country: BR (occurrence: BR)
  Receive Date: 20130702
  Receipt Date: 20131121
  Transmission Date: 20140711
  Serious: Yes (Other)
  Sender: FDA-Public Use
  Company Number: BR-ROCHE-1129091

PATIENT
  Sex: Male
  Weight: 62 kg

DRUGS (8)
  1. PEG-INTERFERON ALFA 2A [Suspect]
     Indication: HEPATITIS C
     Route: 042
     Dates: start: 2011, end: 2011
  2. PEG-INTERFERON ALFA 2A [Suspect]
     Route: 042
     Dates: start: 201103
  3. PEG-INTERFERON ALFA 2A [Suspect]
     Route: 065
     Dates: start: 20130810
  4. RIBAVIRIN [Suspect]
     Indication: HEPATITIS C
     Route: 048
     Dates: start: 201103
  5. RIBAVIRIN [Suspect]
     Route: 065
     Dates: start: 20130810
  6. TELAPREVIR [Suspect]
     Indication: HEPATITIS C
     Route: 065
     Dates: end: 20130810
  7. FLUOXETINE [Concomitant]
     Indication: DEPRESSION
     Route: 065
  8. CLARITIN-D [Concomitant]
     Indication: RHINITIS

REACTIONS (19)
  - Depression [Recovering/Resolving]
  - Disease progression [Not Recovered/Not Resolved]
  - Delirium [Recovered/Resolved]
  - Herpes virus infection [Recovered/Resolved]
  - Pyrexia [Unknown]
  - Chills [Recovered/Resolved]
  - Tremor [Recovered/Resolved]
  - Immunodeficiency [Recovered/Resolved]
  - Emotional disorder [Recovered/Resolved]
  - Pain of skin [Recovered/Resolved]
  - Pruritus generalised [Not Recovered/Not Resolved]
  - Pruritus [Recovered/Resolved]
  - Fatigue [Recovered/Resolved]
  - Fatigue [Recovered/Resolved]
  - Alopecia [Not Recovered/Not Resolved]
  - Headache [Unknown]
  - Nausea [Unknown]
  - Stomatitis [Recovered/Resolved]
  - Malaise [Unknown]
